FAERS Safety Report 15571218 (Version 1)
Quarter: 2018Q4

REPORT INFORMATION
  Report Type: Report from Study
  Country: US (occurrence: US)
  Receive Date: 20181031
  Receipt Date: 20181031
  Transmission Date: 20190205
  Serious: No
  Sender: FDA-Public Use
  Company Number: US-IPSEN BIOPHARMACEUTICALS, INC.-2018-16265

PATIENT
  Sex: Female

DRUGS (1)
  1. INCRELEX [Suspect]
     Active Substance: MECASERMIN
     Indication: BODY HEIGHT BELOW NORMAL

REACTIONS (6)
  - Erythema [Unknown]
  - Abdominal pain upper [Unknown]
  - Off label use [Unknown]
  - Headache [Unknown]
  - Pyrexia [Unknown]
  - Eye pain [Unknown]
